FAERS Safety Report 18747086 (Version 2)
Quarter: 2021Q1

REPORT INFORMATION
  Report Type: Spontaneous
  Country: CA (occurrence: CA)
  Receive Date: 20210115
  Receipt Date: 20210119
  Transmission Date: 20210419
  Serious: Yes (Other)
  Sender: FDA-Public Use
  Company Number: CA-JNJFOC-20210122248

PATIENT
  Age: 15 Year
  Sex: Male

DRUGS (3)
  1. ST. JOHN^S WORT [Interacting]
     Active Substance: ST. JOHN^S WORT
     Indication: DEPRESSIVE SYMPTOM
  2. METHYLPHENIDATE HYDROCHLORIDE. [Suspect]
     Active Substance: METHYLPHENIDATE HYDROCHLORIDE
     Indication: ATTENTION DEFICIT HYPERACTIVITY DISORDER
     Route: 048
  3. ST. JOHN^S WORT [Interacting]
     Active Substance: ST. JOHN^S WORT
     Indication: DEPRESSION
     Route: 048

REACTIONS (6)
  - Disturbance in attention [Recovered/Resolved]
  - Crying [Recovered/Resolved]
  - Aggression [Recovered/Resolved]
  - Agitation [Recovered/Resolved]
  - Drug interaction [Unknown]
  - Depression [Recovered/Resolved]
